FAERS Safety Report 8557647-0 (Version None)
Quarter: 2012Q3

REPORT INFORMATION
  Report Type: 
  Country: None (occurrence: None)
  Receive Date: 20120801
  Receipt Date: 20120718
  Transmission Date: 20120928
  Serious: Yes (Hospitalization)
  Sender: FDA-Public Use
  Company Number: CA-UCBSA-055953

PATIENT
  Age: 62 Year
  Sex: Female
  Weight: 68 kg

DRUGS (12)
  1. NEXIUM [Concomitant]
     Route: 048
  2. METHOTREXATE [Concomitant]
     Indication: PSORIATIC ARTHROPATHY
     Route: 048
     Dates: start: 20111201
  3. CIMZIA [Suspect]
     Route: 058
     Dates: start: 20120530, end: 20120613
  4. ACTONEL [Concomitant]
     Indication: OSTEOPOROSIS
     Route: 048
  5. TRIAMIZIDE [Concomitant]
     Indication: HYPERTENSION
     Dosage: 20-50 MG
     Route: 048
  6. LIPITOR [Concomitant]
     Indication: HYPERCHOLESTEROLAEMIA
     Route: 048
  7. AMCINONIDE AND DIPROFALIC [Concomitant]
     Indication: PSORIASIS
     Route: 061
  8. FOLIC ACID [Concomitant]
     Route: 048
  9. PERINDOPRIL ERBUMINE [Concomitant]
     Indication: HYPERTENSION
     Route: 048
  10. METFORMIN HYDROCHLORIDE [Concomitant]
     Indication: DIABETES MELLITUS
     Route: 048
  11. ATENOLOL [Concomitant]
     Indication: HYPERTENSION
     Route: 048
  12. CIMZIA [Suspect]
     Indication: PSORIATIC ARTHROPATHY
     Route: 058
     Dates: start: 20120404, end: 20120516

REACTIONS (6)
  - SENSATION OF HEAVINESS [None]
  - MALAISE [None]
  - DYSPNOEA [None]
  - HYPOAESTHESIA [None]
  - HEADACHE [None]
  - FATIGUE [None]
